FAERS Safety Report 6079379-3 (Version None)
Quarter: 2009Q1

REPORT INFORMATION
  Report Type: 
  Country: None (occurrence: None)
  Receive Date: 20090216
  Receipt Date: 20090206
  Transmission Date: 20090719
  Serious: Yes (Hospitalization)
  Sender: FDA-Public Use
  Company Number: ES-TEVA-182432ISR

PATIENT
  Sex: Female

DRUGS (5)
  1. FLUOROURACIL [Suspect]
     Indication: COLORECTAL CANCER
     Route: 041
     Dates: start: 20080909, end: 20080927
  2. FLUOROURACIL [Suspect]
     Route: 040
     Dates: start: 20080909, end: 20080923
  3. FOLINIC ACID [Suspect]
     Indication: COLORECTAL CANCER
     Route: 041
     Dates: start: 20080909, end: 20080927
  4. IRINOTECAN HYDROCHLORIDE [Suspect]
     Indication: COLORECTAL CANCER
     Route: 042
     Dates: start: 20080909, end: 20080923
  5. AXITINIB [Suspect]
     Indication: COLORECTAL CANCER
     Route: 048
     Dates: start: 20080909, end: 20081015

REACTIONS (1)
  - OTOSALPINGITIS [None]
